FAERS Safety Report 8875400 (Version 1)
Quarter: 2012Q4

REPORT INFORMATION
  Report Type: 
  Country: US (occurrence: US)
  Receive Date: 20121029
  Receipt Date: 20121029
  Transmission Date: 20130627
  Serious: Yes (Other)
  Sender: FDA-Public Use
  Company Number: US-SANOFI-AVENTIS-2012SA075904

PATIENT
  Age: 53 Year
  Sex: Male

DRUGS (2)
  1. AMBIEN [Suspect]
     Route: 065
  2. AMBRISENTAN [Suspect]
     Route: 048
     Dates: start: 20101126

REACTIONS (7)
  - Chest pain [Unknown]
  - Presyncope [Unknown]
  - Facial bones fracture [Unknown]
  - Dyspnoea [Unknown]
  - Nasal congestion [Unknown]
  - Middle insomnia [Unknown]
  - Drug ineffective [Unknown]
